FAERS Safety Report 25234456 (Version 1)
Quarter: 2025Q2

REPORT INFORMATION
  Report Type: Spontaneous
  Country: US (occurrence: US)
  Receive Date: 20250424
  Receipt Date: 20250424
  Transmission Date: 20250716
  Serious: No
  Sender: TEVA
  Company Number: US-TEVA-VS-3322362

PATIENT
  Sex: Female

DRUGS (2)
  1. ADDERALL [Suspect]
     Active Substance: AMPHETAMINE ASPARTATE\AMPHETAMINE SULFATE\DEXTROAMPHETAMINE SACCHARATE\DEXTROAMPHETAMINE SULFATE
     Indication: Attention deficit hyperactivity disorder
     Dosage: 20 MG
     Route: 065
  2. ADDERALL [Suspect]
     Active Substance: AMPHETAMINE ASPARTATE\AMPHETAMINE SULFATE\DEXTROAMPHETAMINE SACCHARATE\DEXTROAMPHETAMINE SULFATE
     Indication: Attention deficit hyperactivity disorder
     Dosage: 20 MG
     Route: 065

REACTIONS (8)
  - Anxiety [Unknown]
  - Blood glucose increased [Unknown]
  - Dizziness [Unknown]
  - Drug ineffective [Unknown]
  - Heart rate increased [Unknown]
  - Hypertension [Unknown]
  - Balance disorder [Unknown]
  - Insomnia [Unknown]

NARRATIVE: CASE EVENT DATE: 20250410
